FAERS Safety Report 9695922 (Version 1)
Quarter: 2013Q4

REPORT INFORMATION
  Report Type: Spontaneous
  Country: FI (occurrence: FI)
  Receive Date: 20131119
  Receipt Date: 20131119
  Transmission Date: 20140711
  Serious: Yes (Life-Threatening, Hospitalization, Disabling, Other)
  Sender: FDA-Public Use
  Company Number: FI-B.I. PHARMACEUTICALS,INC./RIDGEFIELD-2013-BI-37847SF

PATIENT
  Age: 41 Year
  Sex: Female

DRUGS (1)
  1. PRADAXA [Suspect]
     Indication: ANTIPHOSPHOLIPID ANTIBODIES
     Dosage: 300 MG
     Route: 048
     Dates: end: 20130628

REACTIONS (10)
  - Cerebral infarction [Recovered/Resolved with Sequelae]
  - Cerebral ischaemia [Not Recovered/Not Resolved]
  - Hemiparesis [Not Recovered/Not Resolved]
  - VIIth nerve paralysis [Not Recovered/Not Resolved]
  - Confusional state [Not Recovered/Not Resolved]
  - Aphasia [Not Recovered/Not Resolved]
  - Apraxia [Not Recovered/Not Resolved]
  - Dysgraphia [Not Recovered/Not Resolved]
  - Cerebral disorder [Not Recovered/Not Resolved]
  - Off label use [Unknown]
